FAERS Safety Report 24303564 (Version 1)
Quarter: 2024Q3

REPORT INFORMATION
  Report Type: Spontaneous
  Country: US (occurrence: None)
  Receive Date: 20240909
  Receipt Date: 20240909
  Transmission Date: 20241017
  Serious: Yes (Other)
  Sender: Public
  Company Number: None

PATIENT
  Age: 50 Year
  Sex: Male

DRUGS (1)
  1. XDEMVY [Suspect]
     Active Substance: LOTILANER
     Indication: Demodex blepharitis
     Dosage: 1 GTT DROP TWICE A DAY OPHTHALMIC
     Route: 047
     Dates: start: 20240827, end: 20240906

REACTIONS (4)
  - Eye pruritus [None]
  - Eye swelling [None]
  - Visual impairment [None]
  - Therapy cessation [None]

NARRATIVE: CASE EVENT DATE: 20240909
